FAERS Safety Report 9025873 (Version 1)
Quarter: 2013Q1

REPORT INFORMATION
  Report Type: Spontaneous
  Country: US (occurrence: None)
  Receive Date: 20130104
  Receipt Date: 20130104
  Transmission Date: 20140127
  Serious: Yes (Hospitalization)
  Sender: FDA-Public Use
  Company Number: IPC201212-000663

PATIENT
  Age: 78 Year
  Sex: Female

DRUGS (4)
  1. METOCLOPRAMIDE [Suspect]
     Indication: DIABETIC GASTROPARESIS
  2. CLONAZEPAM [Concomitant]
  3. LORAZEPAM [Concomitant]
  4. FLUOXETINE [Concomitant]

REACTIONS (8)
  - Tardive dyskinesia [None]
  - Respiratory alkalosis [None]
  - Headache [None]
  - Chest pain [None]
  - Anxiety disorder [None]
  - Dyspnoea [None]
  - Tachypnoea [None]
  - Respiratory dyskinesia [None]
